FAERS Safety Report 23472026 (Version 2)
Quarter: 2024Q1

REPORT INFORMATION
  Report Type: Spontaneous
  Country: US (occurrence: US)
  Receive Date: 20240202
  Receipt Date: 20240311
  Transmission Date: 20240409
  Serious: Yes (Hospitalization)
  Sender: FDA-Public Use
  Company Number: US-PHARMING-PHAUS2024000060

PATIENT

DRUGS (2)
  1. RUCONEST [Suspect]
     Active Substance: CONESTAT ALFA
     Indication: Hereditary angioedema
     Dosage: 3000 IU, AS NEEDED
     Route: 042
     Dates: start: 202304
  2. RUCONEST [Suspect]
     Active Substance: CONESTAT ALFA
     Dosage: 3000 IU, AS NEEDED
     Route: 042
     Dates: start: 202304

REACTIONS (2)
  - Back pain [Unknown]
  - Weight decreased [Unknown]
